FAERS Safety Report 20696555 (Version 4)
Quarter: 2022Q3

REPORT INFORMATION
  Report Type: Spontaneous
  Country: US (occurrence: US)
  Receive Date: 20220411
  Receipt Date: 20220912
  Transmission Date: 20221027
  Serious: No
  Sender: FDA-Public Use
  Company Number: US-AMGEN-USASP2022058417

PATIENT
  Age: 84 Year
  Sex: Female

DRUGS (1)
  1. PROLIA [Suspect]
     Active Substance: DENOSUMAB
     Indication: Osteoporosis postmenopausal
     Dosage: 60 MILLIGRAM, Q6MO
     Route: 058
     Dates: start: 2019

REACTIONS (4)
  - Drug hypersensitivity [Unknown]
  - Rash pruritic [Not Recovered/Not Resolved]
  - Dental implantation [Unknown]
  - Bone graft [Unknown]

NARRATIVE: CASE EVENT DATE: 20210801
